FAERS Safety Report 5870830-8 (Version None)
Quarter: 2008Q3

REPORT INFORMATION
  Report Type: 
  Country: None (occurrence: None)
  Receive Date: 20080904
  Receipt Date: 20080822
  Transmission Date: 20090109
  Serious: Yes (Hospitalization, Other)
  Sender: FDA-Public Use
  Company Number: JP-ELI_LILLY_AND_COMPANY-JP200801001774

PATIENT
  Sex: Male
  Weight: 78 kg

DRUGS (12)
  1. OLANZAPINE [Suspect]
     Dosage: 2.5 MG, DAILY (1/D)
     Route: 048
     Dates: start: 20071005, end: 20071219
  2. SULPIRIDE [Concomitant]
     Dosage: 100 MG, 2/D
     Route: 048
     Dates: start: 20051101
  3. SERTRALINE HYDROCHLORIDE [Concomitant]
     Dosage: 100 MG, DAILY (1/D)
     Route: 048
     Dates: start: 20051101
  4. BROTIZOLAM [Concomitant]
     Dosage: 0.25 MG, DAILY (1/D)
     Route: 048
     Dates: start: 20051101
  5. RHYTHMY [Concomitant]
     Dosage: 1 MG, DAILY (1/D)
     Route: 048
     Dates: start: 20051101
  6. MEDIPEACE [Concomitant]
     Dosage: 1 MG, DAILY (1/D)
     Route: 048
     Dates: start: 20051101
  7. LEVOTHYROXINE SODIUM [Concomitant]
     Dosage: 50 UG, DAILY (1/D)
     Route: 048
     Dates: start: 20070101
  8. MEILAX [Concomitant]
     Dosage: 1 MG, DAILY (1/D)
     Route: 048
     Dates: start: 20071130
  9. DOGMATYL [Concomitant]
  10. PAXIL [Concomitant]
     Route: 048
  11. LENDORMIN [Concomitant]
     Route: 048
  12. EURODIN [Concomitant]
     Route: 048

REACTIONS (4)
  - DIABETES MELLITUS [None]
  - HYPERLIPIDAEMIA [None]
  - LIVER DISORDER [None]
  - WEIGHT INCREASED [None]
